FAERS Safety Report 8063729-2 (Version None)
Quarter: 2012Q1

REPORT INFORMATION
  Report Type: 
  Country: None (occurrence: None)
  Receive Date: 20120123
  Receipt Date: 20120116
  Transmission Date: 20120608
  Serious: Yes (Hospitalization)
  Sender: FDA-Public Use
  Company Number: PHHY2012TR003802

PATIENT
  Age: 49 Year
  Sex: Male

DRUGS (6)
  1. FLUOROURACIL [Suspect]
     Indication: SIGNET-RING CELL CARCINOMA
     Dosage: UNK
  2. FLUOROURACIL [Suspect]
     Dosage: 1250 MG, UNK
  3. CISPLATIN [Concomitant]
     Dosage: 40 MG, UNK
  4. EPIRUBICIN HYDROCHLORIDE [Concomitant]
     Indication: SIGNET-RING CELL CARCINOMA
     Dosage: UNK
  5. EPIRUBICIN HYDROCHLORIDE [Concomitant]
     Dosage: 150 MG, UNK
  6. CISPLATIN [Concomitant]
     Indication: SIGNET-RING CELL CARCINOMA
     Dosage: UNK

REACTIONS (6)
  - KOUNIS SYNDROME [None]
  - PRURITUS GENERALISED [None]
  - URTICARIA [None]
  - CHEST PAIN [None]
  - VENTRICULAR HYPOKINESIA [None]
  - VASOSPASM [None]
